FAERS Safety Report 15599059 (Version 1)
Quarter: 2018Q4

REPORT INFORMATION
  Report Type: Spontaneous
  Country: US (occurrence: US)
  Receive Date: 20181108
  Receipt Date: 20181108
  Transmission Date: 20190205
  Serious: No
  Sender: FDA-Public Use
  Company Number: US-PERRIGO-18US004653

PATIENT
  Age: 48 Year
  Sex: Female
  Weight: 74.83 kg

DRUGS (3)
  1. FAMOTIDINE. [Suspect]
     Active Substance: FAMOTIDINE
     Dosage: 20 MG, UP TO BID, PRN
     Route: 048
     Dates: start: 201804
  2. FAMOTIDINE. [Suspect]
     Active Substance: FAMOTIDINE
     Indication: DYSPEPSIA
     Dosage: 20 MG, UP TO BID, PRN
     Route: 048
     Dates: end: 201803
  3. FAMOTIDINE. [Suspect]
     Active Substance: FAMOTIDINE
     Dosage: 20 MG, UP TO 4 TIMES IN 24 HOURS
     Route: 048
     Dates: start: 201804, end: 201804

REACTIONS (2)
  - Incorrect dose administered [Recovered/Resolved]
  - Drug effect decreased [Unknown]

NARRATIVE: CASE EVENT DATE: 201804
